FAERS Safety Report 16535762 (Version 1)
Quarter: 2019Q3

REPORT INFORMATION
  Report Type: Spontaneous
  Country: US (occurrence: US)
  Receive Date: 20190705
  Receipt Date: 20190705
  Transmission Date: 20191004
  Serious: Yes (Hospitalization, Other)
  Sender: FDA-Public Use
  Company Number: US-LUPIN PHARMACEUTICALS INC.-2019-04191

PATIENT
  Age: 26 Year
  Sex: Male

DRUGS (6)
  1. LOPERAMIDE HYDROCHLORIDE. [Suspect]
     Active Substance: LOPERAMIDE HYDROCHLORIDE
     Indication: PRODUCT USED FOR UNKNOWN INDICATION
     Dosage: 200 MILLIGRAM (SUPRATHERAPEUTIC DOSE) PILLS
     Route: 048
  2. OXYCODONE [Suspect]
     Active Substance: OXYCODONE
     Dosage: 180 MILLIGRAM, QD
     Route: 065
  3. MORPHINE [Suspect]
     Active Substance: MORPHINE
     Dosage: 270 MILLIGRAM, QD
     Route: 065
  4. OXYCODONE [Suspect]
     Active Substance: OXYCODONE
     Indication: MUSCULOSKELETAL INJURY
     Dosage: 120 MILLIGRAM, QD
     Route: 065
  5. MORPHINE [Suspect]
     Active Substance: MORPHINE
     Indication: MUSCULOSKELETAL INJURY
     Dosage: 180 MILLIGRAM, QD
     Route: 065
  6. HEROIN [Concomitant]
     Active Substance: DIAMORPHINE
     Indication: PRODUCT USED FOR UNKNOWN INDICATION
     Dosage: 3 GRAM, QD
     Route: 065

REACTIONS (11)
  - Nausea [Unknown]
  - Electrocardiogram QT prolonged [Unknown]
  - Bundle branch block left [Unknown]
  - Drug withdrawal syndrome [Recovered/Resolved]
  - Overdose [Unknown]
  - Electrocardiogram PR prolongation [Unknown]
  - Cardiotoxicity [Unknown]
  - Haematemesis [Unknown]
  - Drug use disorder [Recovered/Resolved]
  - Vomiting [Unknown]
  - Bundle branch block right [Unknown]
